FAERS Safety Report 6856676-2 (Version None)
Quarter: 2010Q3

REPORT INFORMATION
  Report Type: 
  Country: None (occurrence: None)
  Receive Date: 20100719
  Receipt Date: 20100713
  Transmission Date: 20110219
  Serious: Yes (Hospitalization)
  Sender: FDA-Public Use
  Company Number: CHPA2010US11486

PATIENT
  Age: 62 Year
  Sex: Female
  Weight: 102.95 kg

DRUGS (16)
  1. BENEFIBER W/ WHEAT DEXTRIN (NCH) [Suspect]
     Indication: IRRITABLE BOWEL SYNDROME
     Dosage: 2 TSP, TID
     Route: 048
     Dates: start: 20100712
  2. BENEFIBER W/ WHEAT DEXTRIN (NCH) [Suspect]
     Dosage: 2 TSP, TID
     Route: 048
  3. ACIPHEX [Concomitant]
     Dosage: 20 MG, BID
     Route: 048
  4. LOTENSIN [Concomitant]
     Indication: BLOOD PRESSURE
     Dosage: 40 MG, QD
     Route: 048
  5. CYMBALTA [Concomitant]
     Indication: MOOD SWINGS
     Dosage: 60 MG, QD
     Route: 048
  6. FUROSEMIDE [Concomitant]
     Indication: DIURETIC THERAPY
     Dosage: 40 MG, BID
     Route: 048
  7. POTASSIUM CHLORIDE [Concomitant]
     Indication: MINERAL SUPPLEMENTATION
     Dosage: 10 MEQ, BID
     Route: 048
  8. LYRICA [Concomitant]
     Indication: FIBROMYALGIA
     Dosage: 100 MG, TID
     Route: 048
  9. WELLBUTRIN [Concomitant]
     Indication: MOOD SWINGS
     Dosage: 150 MG, BID
     Route: 048
  10. TEKTURNA [Concomitant]
     Indication: HYPERTENSION
     Dosage: 300 MG, QD
     Route: 048
  11. ATENOLOL [Concomitant]
     Indication: BLOOD PRESSURE
     Dosage: 100 MG, BID
     Route: 048
  12. TEMAZEPAM [Concomitant]
     Indication: INSOMNIA
     Dosage: 30 MG, QD
     Route: 048
  13. PREMARIN [Concomitant]
     Indication: MENOPAUSE
     Dosage: .625 MG, QD
     Route: 048
  14. SIMVASTATIN [Concomitant]
     Indication: BLOOD CHOLESTEROL
     Dosage: 20 MG, QD
     Route: 048
  15. VITAMIN D [Concomitant]
     Indication: SUPPLEMENTATION THERAPY
     Dosage: 50000 I.U, ONE TIME A WEEK
     Route: 048
  16. FELODIPINE [Concomitant]
     Indication: BLOOD PRESSURE
     Dosage: 2.5 MG, QD
     Route: 048

REACTIONS (7)
  - AMNESIA [None]
  - CEREBRAL HAEMORRHAGE [None]
  - CEREBROVASCULAR ACCIDENT [None]
  - HYPOTENSION [None]
  - OFF LABEL USE [None]
  - URINARY TRACT INFECTION [None]
  - VISUAL IMPAIRMENT [None]
